FAERS Safety Report 7138725-X (Version None)
Quarter: 2010Q4

REPORT INFORMATION
  Report Type: 
  Country: None (occurrence: None)
  Receive Date: 20101202
  Receipt Date: 20101202
  Transmission Date: 20110411
  Serious: Yes (Hospitalization)
  Sender: FDA-Public Use
  Company Number: None

PATIENT
  Age: 49 Year
  Sex: Female
  Weight: 60.3284 kg

DRUGS (2)
  1. PASIREOTIDE LAR [Suspect]
     Indication: MENINGIOMA
     Dosage: 20MG
     Dates: start: 20101012
  2. GUAIFENESIN [Concomitant]

REACTIONS (2)
  - BRAIN OEDEMA [None]
  - SUBDURAL HAEMATOMA [None]
